FAERS Safety Report 9012930 (Version 1)
Quarter: 2013Q1

REPORT INFORMATION
  Report Type: Spontaneous
  Country: US (occurrence: US)
  Receive Date: 20130114
  Receipt Date: 20130114
  Transmission Date: 20140127
  Serious: Yes (Hospitalization)
  Sender: FDA-Public Use
  Company Number: US-GLAXOSMITHKLINE-A0903188A

PATIENT
  Age: 64 Year
  Sex: Male

DRUGS (2)
  1. AVANDAMET [Suspect]
     Indication: TYPE 2 DIABETES MELLITUS
     Route: 048
     Dates: start: 200303, end: 200401
  2. AVANDIA [Suspect]
     Indication: TYPE 2 DIABETES MELLITUS
     Dosage: 8MG PER DAY
     Route: 048
     Dates: start: 200401, end: 20070531

REACTIONS (3)
  - Cardiac arrest [Unknown]
  - Cerebrovascular accident [Unknown]
  - Myocardial ischaemia [Unknown]
